FAERS Safety Report 20934499 (Version 1)
Quarter: 2022Q2

REPORT INFORMATION
  Report Type: Spontaneous
  Country: None (occurrence: US)
  Receive Date: 20220608
  Receipt Date: 20220608
  Transmission Date: 20220721
  Serious: Yes (Other)
  Sender: FDA-Public Use
  Company Number: US-Valu Merchandisers Company-2129607

PATIENT
  Sex: Male

DRUGS (1)
  1. PHENOL [Suspect]
     Active Substance: PHENOL

REACTIONS (2)
  - Hyperhidrosis [None]
  - Swelling [None]
